FAERS Safety Report 4823927-5 (Version None)
Quarter: 2005Q4

REPORT INFORMATION
  Report Type: 
  Country: None (occurrence: None)
  Receive Date: 20051109
  Receipt Date: 20051031
  Transmission Date: 20060501
  Serious: Yes (Life-Threatening, Hospitalization)
  Sender: FDA-Public Use
  Company Number: JP-JNJFOC-20050904628

PATIENT
  Sex: Male

DRUGS (35)
  1. RISPERDAL [Suspect]
     Route: 048
  2. RISPERDAL [Suspect]
     Indication: DRUG USE FOR UNKNOWN INDICATION
     Route: 048
  3. HALOPERIDOL [Suspect]
     Route: 048
  4. HALOPERIDOL [Suspect]
     Route: 048
  5. HALOPERIDOL [Suspect]
     Route: 048
  6. HALOPERIDOL [Suspect]
     Route: 048
  7. HALOPERIDOL [Suspect]
     Route: 048
  8. HALOPERIDOL [Suspect]
     Route: 048
  9. HALOPERIDOL [Suspect]
     Route: 048
  10. HALOPERIDOL [Suspect]
     Route: 048
  11. HALOPERIDOL [Suspect]
     Indication: DRUG USE FOR UNKNOWN INDICATION
     Route: 048
  12. OLANZAPINE [Suspect]
     Indication: DRUG USE FOR UNKNOWN INDICATION
     Route: 048
  13. CARBAMAZEPINE [Suspect]
     Route: 048
  14. CARBAMAZEPINE [Suspect]
     Route: 048
  15. CARBAMAZEPINE [Suspect]
     Route: 048
  16. CARBAMAZEPINE [Suspect]
     Route: 048
  17. CARBAMAZEPINE [Suspect]
     Route: 048
  18. CARBAMAZEPINE [Suspect]
     Route: 048
  19. CARBAMAZEPINE [Suspect]
     Route: 048
  20. CARBAMAZEPINE [Suspect]
     Route: 048
  21. CARBAMAZEPINE [Suspect]
     Indication: DRUG USE FOR UNKNOWN INDICATION
     Route: 048
  22. BIPERIDEN HYDROCHLORIDE TAB [Concomitant]
  23. BIPERIDEN HYDROCHLORIDE TAB [Concomitant]
  24. BIPERIDEN HYDROCHLORIDE TAB [Concomitant]
  25. DIAZEPAM [Concomitant]
  26. DIAZEPAM [Concomitant]
  27. NITRAZEPAM [Concomitant]
  28. CLONAZAPINE [Concomitant]
  29. CLONAZAPINE [Concomitant]
  30. ZOPICLONE [Concomitant]
  31. LORAZEPAM [Concomitant]
  32. LOXOPROFEN SODIUM [Concomitant]
  33. LOXOPROFEN SODIUM [Concomitant]
  34. REBAMIPIDE [Concomitant]
  35. REBAMIPIDE [Concomitant]

REACTIONS (2)
  - RENAL FAILURE ACUTE [None]
  - RHABDOMYOLYSIS [None]
